FAERS Safety Report 6424707-X (Version None)
Quarter: 2009Q4

REPORT INFORMATION
  Report Type: 
  Country: None (occurrence: None)
  Receive Date: 20091029
  Receipt Date: 20091022
  Transmission Date: 20100525
  Serious: Yes (Disabling)
  Sender: FDA-Public Use
  Company Number: GXKR2009GB11594

PATIENT
  Age: 47 Year
  Sex: Female

DRUGS (6)
  1. WARFARIN SODIUM [Suspect]
     Indication: PULMONARY EMBOLISM
     Dosage: ORAL
     Route: 048
  2. FUCUS (FUCUS, HOMEOPATICS NOS) [Suspect]
     Indication: WEIGHT CONTROL
     Dosage: 1 DF, ORAL
     Route: 048
     Dates: start: 20090910, end: 20090916
  3. PEUMAS BOLDUS (PEUMUS BOLDO, PEUMUS BOLDUS) [Suspect]
     Indication: WEIGHT CONTROL
     Dosage: 1 DF, ORAL
     Route: 048
     Dates: start: 20090910, end: 20090916
  4. PLANT ALKALOIDS AND OTHER NATURAL PRODUCTS(NO INGREDIENTS/SUBSTANCES) [Suspect]
     Indication: WEIGHT CONTROL
     Dosage: 1 DF, ORAL
     Route: 048
     Dates: start: 20090910, end: 20090916
  5. TARAXACUM OFFICINALE (TARAXACUM, TARAXACUM OFFICINALE) [Suspect]
     Indication: WEIGHT CONTROL
     Dosage: 1 DF, ORAL
     Route: 048
     Dates: start: 20090910, end: 20090916
  6. LEVOTHYROXINE SODIUM [Concomitant]

REACTIONS (3)
  - DRUG INTERACTION [None]
  - INTERNATIONAL NORMALISED RATIO INCREASED [None]
  - VAGINAL HAEMORRHAGE [None]
